FAERS Safety Report 8449687-7 (Version None)
Quarter: 2012Q2

REPORT INFORMATION
  Report Type: 
  Country: None (occurrence: None)
  Receive Date: 20120620
  Receipt Date: 20120613
  Transmission Date: 20120825
  Serious: No
  Sender: FDA-Public Use
  Company Number: US-PFIZER INC-2012101464

PATIENT
  Sex: Male

DRUGS (2)
  1. CHANTIX [Suspect]
     Dosage: UNK, 2X/DAY
     Dates: start: 20120101, end: 20120313
  2. CHANTIX [Suspect]
     Indication: SMOKING CESSATION THERAPY
     Dosage: 0.5 MG, DAILY
     Dates: start: 20120217, end: 20120101

REACTIONS (1)
  - COUGH [None]
